FAERS Safety Report 6518505-6 (Version None)
Quarter: 2009Q4

REPORT INFORMATION
  Report Type: 
  Country: None (occurrence: None)
  Receive Date: 20091226
  Receipt Date: 20091217
  Transmission Date: 20100525
  Serious: Yes (Hospitalization, Other)
  Sender: FDA-Public Use
  Company Number: JP-JNJFOC-20091205496

PATIENT
  Age: 51 Year
  Sex: Female

DRUGS (7)
  1. RISPERDAL [Suspect]
     Indication: SCHIZOPHRENIA
     Route: 048
  2. RISPERDAL [Suspect]
     Route: 048
  3. RISPERDAL [Suspect]
     Route: 048
  4. RISPERDAL [Suspect]
     Route: 048
  5. RISPERDAL [Suspect]
     Route: 048
  6. BIPERIDEN HYDROCHLORIDE [Concomitant]
     Indication: PROPHYLAXIS
     Dosage: MAXIMUM 3 MG PER DAY
     Route: 048
  7. LENDORMIN D [Concomitant]
     Indication: INSOMNIA
     Route: 048

REACTIONS (2)
  - DIABETIC COMA [None]
  - DIABETIC KETOACIDOSIS [None]
